APPROVED DRUG PRODUCT: NALOXONE HYDROCHLORIDE
Active Ingredient: NALOXONE HYDROCHLORIDE
Strength: 0.4MG/ML
Dosage Form/Route: INJECTABLE;INJECTION
Application: A212456 | Product #001 | TE Code: AP
Applicant: EUGIA PHARMA SPECIALITIES LTD
Approved: Nov 4, 2019 | RLD: No | RS: No | Type: RX